FAERS Safety Report 14037614 (Version 2)
Quarter: 2017Q4

REPORT INFORMATION
  Report Type: Spontaneous
  Country: US (occurrence: US)
  Receive Date: 20171004
  Receipt Date: 20171120
  Transmission Date: 20180321
  Serious: No
  Sender: FDA-Public Use
  Company Number: US-PFIZER INC-2017423751

PATIENT
  Age: 78 Year
  Sex: Male

DRUGS (1)
  1. XALKORI [Suspect]
     Active Substance: CRIZOTINIB
     Indication: LUNG NEOPLASM MALIGNANT
     Dosage: 250 MG, 1X/DAY
     Dates: start: 20170830, end: 2017

REACTIONS (1)
  - Neoplasm progression [Recovered/Resolved]

NARRATIVE: CASE EVENT DATE: 2017
